FAERS Safety Report 12826877 (Version 1)
Quarter: 2016Q4

REPORT INFORMATION
  Report Type: Spontaneous
  Country: US (occurrence: US)
  Receive Date: 20161007
  Receipt Date: 20161007
  Transmission Date: 20170207
  Serious: Yes (Hospitalization)
  Sender: FDA-Public Use
  Company Number: US-INCYTE CORPORATION-2016IN006215

PATIENT
  Age: 83 Year
  Sex: Male

DRUGS (4)
  1. IBUPROFEN. [Concomitant]
     Active Substance: IBUPROFEN
  2. LASIX [Concomitant]
     Active Substance: FUROSEMIDE
  3. OXYCODONE [Concomitant]
     Active Substance: OXYCODONE
  4. JAKAFI [Suspect]
     Active Substance: RUXOLITINIB
     Indication: MYELOFIBROSIS
     Dosage: 25 MG, BID
     Route: 048
     Dates: start: 20141224

REACTIONS (10)
  - Condition aggravated [Unknown]
  - Pyrexia [Unknown]
  - Intervertebral disc protrusion [Unknown]
  - Pulmonary oedema [Unknown]
  - Diarrhoea [Unknown]
  - Back pain [Unknown]
  - Bacterial infection [Unknown]
  - Pneumonia [Unknown]
  - Nephrolithiasis [Unknown]
  - Hepatic enzyme abnormal [Unknown]

NARRATIVE: CASE EVENT DATE: 201606
